FAERS Safety Report 10201898 (Version 2)
Quarter: 2014Q3

REPORT INFORMATION
  Report Type: Spontaneous
  Country: US (occurrence: None)
  Receive Date: 20140527
  Receipt Date: 20140820
  Transmission Date: 20150326
  Serious: No
  Sender: FDA-Public Use
  Company Number: 2013CT000085

PATIENT
  Age: 52 Year
  Sex: Female
  Weight: 112.49 kg

DRUGS (11)
  1. IRON [Concomitant]
     Active Substance: IRON
  2. BLOOD PRESSURE PILLS [Concomitant]
     Active Substance: UNSPECIFIED INGREDIENT
  3. VITAMIN B12 [Concomitant]
     Active Substance: CYANOCOBALAMIN
  4. ASPIRIN. [Concomitant]
     Active Substance: ASPIRIN
  5. CALCIUM [Concomitant]
     Active Substance: CALCIUM
  6. KORLYM [Suspect]
     Active Substance: MIFEPRISTONE
     Indication: PITUITARY-DEPENDENT CUSHING^S SYNDROME
     Dates: start: 20131001
  7. LANTUS [Concomitant]
     Active Substance: INSULIN GLARGINE
  8. THYROID MEDICATIONS [Concomitant]
  9. VITAMIN D [Concomitant]
     Active Substance: CHOLECALCIFEROL
  10. POTASSIUM /00031402/ [Concomitant]
     Active Substance: POTASSIUM
  11. INSULIN [Concomitant]
     Active Substance: INSULIN NOS

REACTIONS (7)
  - Fatigue [None]
  - Headache [None]
  - Abdominal pain lower [None]
  - Ovarian cyst [None]
  - Weight decreased [None]
  - Drug dose omission [None]
  - Vaginal haemorrhage [None]

NARRATIVE: CASE EVENT DATE: 20131003
